FAERS Safety Report 19192101 (Version 1)
Quarter: 2021Q2

REPORT INFORMATION
  Report Type: Spontaneous
  Country: US (occurrence: US)
  Receive Date: 20210429
  Receipt Date: 20210429
  Transmission Date: 20210717
  Serious: Yes (Other)
  Sender: FDA-Public Use
  Company Number: US-SUN PHARMACEUTICAL INDUSTRIES LTD-2021R1-293354

PATIENT
  Age: 49 Year
  Sex: Male

DRUGS (2)
  1. GENTAMYCIN [Suspect]
     Active Substance: GENTAMICIN
     Indication: SURGERY
     Dosage: 150 MILLIGRAM, , Q8HRS
     Route: 042
  2. CLINDAMYCIN. [Suspect]
     Active Substance: CLINDAMYCIN
     Indication: SURGERY
     Dosage: 600 MILLIGRAM, Q6HRS
     Route: 042

REACTIONS (1)
  - Megacolon [Unknown]
